FAERS Safety Report 8766275 (Version 1)
Quarter: 2012Q4

REPORT INFORMATION
  Report Type: Report from Study
  Country: GB (occurrence: GB)
  Receive Date: 20120904
  Receipt Date: 20120904
  Transmission Date: 20130627
  Serious: Yes (Disabling)
  Sender: FDA-Public Use
  Company Number: GB-ROCHE-745247

PATIENT
  Age: 75 Year
  Sex: Male
  Weight: 89 kg

DRUGS (9)
  1. MIRCERA [Suspect]
     Indication: NEPHROGENIC ANAEMIA
     Dosage: LAST DOSE PRIOR TO SAE: 01 NOV 2010, FREQUENCY REPORTED AS MONTH. NOT GIVEN DURING EVENT.
     Route: 058
  2. ENOXAPARIN [Suspect]
     Indication: PRODUCT USED FOR UNKNOWN INDICATION
     Route: 065
  3. SIMVASTATIN [Concomitant]
     Route: 065
  4. GLICLAZIDE [Concomitant]
     Route: 065
  5. OMEPRAZOLE [Concomitant]
     Route: 065
  6. ALFACALCIDOL [Concomitant]
     Route: 065
  7. CALCICHEW [Concomitant]
     Route: 065
  8. LANTHANUM CARBONATE [Concomitant]
     Route: 065
  9. RAMIPRIL [Concomitant]
     Route: 065
     Dates: start: 20080724, end: 20101106

REACTIONS (1)
  - Cerebrovascular accident [Recovered/Resolved]
